FAERS Safety Report 6274832-1 (Version None)
Quarter: 2009Q3

REPORT INFORMATION
  Report Type: 
  Country: None (occurrence: None)
  Receive Date: 20090721
  Receipt Date: 20090716
  Transmission Date: 20100115
  Serious: Yes (Life-Threatening, Hospitalization, Other)
  Sender: FDA-Public Use
  Company Number: US-BRISTOL-MYERS SQUIBB COMPANY-14658389

PATIENT
  Age: 63 Year
  Sex: Female
  Weight: 76 kg

DRUGS (5)
  1. IXABEPILONE [Suspect]
     Indication: BREAST CANCER
     Dosage: FORM-INJ.STRENGTH 15MG.ALSO RECEIVED 1 DOSE(75MG)FOR 5 DAYS
     Route: 042
     Dates: start: 20090603, end: 20090603
  2. DASATINIB [Suspect]
     Indication: BREAST CANCER
     Dosage: DASATINIB 50MG.
     Route: 048
     Dates: start: 20090603, end: 20090607
  3. BENADRYL [Concomitant]
     Indication: PREMEDICATION
  4. FAMOTIDINE [Concomitant]
     Indication: PREMEDICATION
  5. ONDANSETRON HCL [Concomitant]
     Indication: PREMEDICATION

REACTIONS (6)
  - DEHYDRATION [None]
  - DIARRHOEA [None]
  - NAUSEA [None]
  - NEUTROPENIA [None]
  - URINARY TRACT INFECTION [None]
  - VOMITING [None]
